FAERS Safety Report 10022570 (Version 1)
Quarter: 2014Q1

REPORT INFORMATION
  Report Type: Spontaneous
  Country: US (occurrence: US)
  Receive Date: 20140319
  Receipt Date: 20140319
  Transmission Date: 20141002
  Serious: No
  Sender: FDA-Public Use
  Company Number: US-ASTRAZENECA-2014SE04197

PATIENT
  Age: 66 Year
  Sex: Female
  Weight: 62.6 kg

DRUGS (5)
  1. TOPROL XL [Suspect]
     Indication: CARDIOMYOPATHY
     Dosage: GENERIC METOPROLOL SUCCINATE
     Route: 048
     Dates: start: 2004, end: 2004
  2. TOPROL XL [Suspect]
     Indication: CARDIOMYOPATHY
     Route: 048
     Dates: start: 2004, end: 201311
  3. TOPROL XL [Suspect]
     Indication: CARDIOMYOPATHY
     Route: 048
     Dates: start: 2013
  4. DIOVAN [Concomitant]
     Indication: HYPERTENSION
     Route: 048
  5. PROTONIX [Concomitant]
     Indication: HYPERCHLORHYDRIA
     Dosage: UNKNOWN PRN
     Route: 048

REACTIONS (5)
  - Heart rate increased [Unknown]
  - Drug intolerance [None]
  - Abdominal pain upper [Unknown]
  - Drug ineffective [Unknown]
  - Intentional drug misuse [Unknown]
